FAERS Safety Report 9748116 (Version 1)
Quarter: 2013Q4

REPORT INFORMATION
  Report Type: Spontaneous
  Country: US (occurrence: US)
  Receive Date: 20131212
  Receipt Date: 20131212
  Transmission Date: 20140711
  Serious: No
  Sender: FDA-Public Use
  Company Number: US-PFIZER INC-2013354876

PATIENT
  Age: 62 Year
  Sex: Male
  Weight: 87.98 kg

DRUGS (3)
  1. LYRICA [Suspect]
     Indication: NEURALGIA
     Dosage: 100 MG, 3X/DAY
     Route: 048
  2. LYRICA [Suspect]
     Indication: BACK PAIN
  3. HYDROCODONE [Concomitant]
     Indication: BACK PAIN
     Dosage: 10 MG, 4X/DAY

REACTIONS (1)
  - Weight increased [Unknown]
